FAERS Safety Report 7921656-2 (Version None)
Quarter: 2011Q4

REPORT INFORMATION
  Report Type: 
  Country: None (occurrence: None)
  Receive Date: 20111117
  Receipt Date: 20111110
  Transmission Date: 20120403
  Serious: Yes (Hospitalization)
  Sender: FDA-Public Use
  Company Number: US-GLAXOSMITHKLINE-A0725657A

PATIENT
  Age: 65 Year
  Sex: Female
  Weight: 108.6 kg

DRUGS (10)
  1. NAPROXEN [Concomitant]
  2. BENAZEPRIL HYDROCHLORIDE [Concomitant]
  3. LANTUS [Concomitant]
     Dates: start: 20050501, end: 20050501
  4. AMARYL [Concomitant]
     Dates: start: 20050401, end: 20050401
  5. ULTRAM [Concomitant]
     Dates: start: 20060501
  6. XENICAL [Concomitant]
  7. AVANDAMET [Suspect]
     Indication: TYPE 2 DIABETES MELLITUS
     Dosage: 2TAB TWICE PER DAY
  8. AVANDIA [Suspect]
     Indication: TYPE 2 DIABETES MELLITUS
  9. METFORMIN HCL [Concomitant]
  10. LEXAPRO [Concomitant]

REACTIONS (7)
  - MYOCARDIAL INFARCTION [None]
  - ACUTE CORONARY SYNDROME [None]
  - ACTIVITIES OF DAILY LIVING IMPAIRED [None]
  - PRINZMETAL ANGINA [None]
  - CORONARY ARTERY DISEASE [None]
  - HEART INJURY [None]
  - STRESS CARDIOMYOPATHY [None]
